FAERS Safety Report 9564384 (Version 3)
Quarter: 2013Q4

REPORT INFORMATION
  Report Type: Spontaneous
  Country: US (occurrence: US)
  Receive Date: 20130930
  Receipt Date: 20131022
  Transmission Date: 20140711
  Serious: Yes (Hospitalization)
  Sender: FDA-Public Use
  Company Number: US-BIOGENIDEC-2013BI093856

PATIENT
  Sex: Female

DRUGS (2)
  1. AVONEX [Suspect]
     Indication: MULTIPLE SCLEROSIS
     Route: 030
     Dates: start: 19960801, end: 201308
  2. IMURAN [Concomitant]
     Indication: MULTIPLE SCLEROSIS

REACTIONS (3)
  - Progressive multifocal leukoencephalopathy [Unknown]
  - Upper limb fracture [Unknown]
  - Fall [Recovered/Resolved]
